FAERS Safety Report 6548797-9 (Version None)
Quarter: 2010Q1

REPORT INFORMATION
  Report Type: 
  Country: None (occurrence: None)
  Receive Date: 20100124
  Receipt Date: 20091119
  Transmission Date: 20100710
  Serious: No
  Sender: FDA-Public Use
  Company Number: US-ALLERGAN-0916077US

PATIENT
  Age: 65 Year
  Sex: Female

DRUGS (4)
  1. RESTASIS [Suspect]
     Indication: DRY EYE
     Dosage: HALF A VIAL BID
     Route: 047
     Dates: start: 20091109
  2. GENTEAL PM [Concomitant]
  3. WAXI GEL DROPS [Concomitant]
  4. SYSTANE [Concomitant]

REACTIONS (3)
  - DRUG ADMINISTRATION ERROR [None]
  - ERYTHEMA OF EYELID [None]
  - EYE IRRITATION [None]
